FAERS Safety Report 5674953-8 (Version None)
Quarter: 2008Q1

REPORT INFORMATION
  Report Type: 
  Country: None (occurrence: None)
  Receive Date: 20080320
  Receipt Date: 20080310
  Transmission Date: 20080703
  Serious: Yes (Hospitalization, Other)
  Sender: FDA-Public Use
  Company Number: US-ABBOTT-08P-163-0441884-00

PATIENT
  Age: 16 Year
  Sex: Male
  Weight: 58.7 kg

DRUGS (4)
  1. VALPROIC ACID [Suspect]
     Indication: CONVULSION
  2. VALPROIC ACID [Suspect]
  3. CLONAZEPAM [Concomitant]
     Indication: CONVULSION
     Dosage: NOT REPORTED
  4. ACETAZOLAMIDE [Concomitant]
     Indication: CONVULSION
     Dosage: NOT REPORTED

REACTIONS (2)
  - NEUTROPENIA [None]
  - RED BLOOD CELL COUNT DECREASED [None]
